FAERS Safety Report 7631469-7 (Version None)
Quarter: 2011Q3

REPORT INFORMATION
  Report Type: 
  Country: None (occurrence: None)
  Receive Date: 20110725
  Receipt Date: 20110713
  Transmission Date: 20111222
  Serious: Yes (Hospitalization)
  Sender: FDA-Public Use
  Company Number: PHHY2011US63351

PATIENT
  Age: 52 Year
  Sex: Male

DRUGS (8)
  1. CLOZAPINE [Suspect]
     Indication: SCHIZOPHRENIA
     Dosage: 12.5 MG, UNK
  2. HEPARIN [Concomitant]
  3. RISPERIDONE [Concomitant]
     Dosage: 50 MG, BIW
  4. DIVALPROEX SODIUM [Concomitant]
     Dosage: 1500 MG, UNK
  5. PERPHENAZINE [Concomitant]
     Dosage: 16 MG, DAILY
  6. EPINEPHRINE [Concomitant]
     Dosage: 1 MG, UNK
  7. CLOZAPINE [Suspect]
     Dosage: 300 MG, DAILY
  8. CLOZAPINE [Suspect]
     Dosage: 25 MG, DAILY

REACTIONS (11)
  - TACHYCARDIA [None]
  - CARDIAC ARREST [None]
  - OXYGEN SATURATION DECREASED [None]
  - HYPOTENSION [None]
  - HYPOXIA [None]
  - PERICARDITIS [None]
  - PERICARDIAL EFFUSION [None]
  - PULMONARY EMBOLISM [None]
  - HEART RATE INCREASED [None]
  - PYREXIA [None]
  - RESPIRATORY DEPRESSION [None]
